FAERS Safety Report 18605596 (Version 1)
Quarter: 2020Q4

REPORT INFORMATION
  Report Type: Spontaneous
  Country: DE (occurrence: DE)
  Receive Date: 20201211
  Receipt Date: 20201211
  Transmission Date: 20210114
  Serious: Yes (Other)
  Sender: FDA-Public Use
  Company Number: DE-MYLANLABS-2020M1100186

PATIENT

DRUGS (15)
  1. IFOSFAMIDE. [Suspect]
     Active Substance: IFOSFAMIDE
     Indication: CENTRAL NERVOUS SYSTEM LYMPHOMA
     Dosage: 800 MG/M2, EVERY 2 WEEKS (CYCLE 5, DAY 2-4)
     Route: 042
  2. IFOSFAMIDE. [Suspect]
     Active Substance: IFOSFAMIDE
     Dosage: 800 MG/M2, EVERY 2 WEEKS (CYCLE 1-3, DAY 2-4)
     Route: 042
  3. ARA-C [Suspect]
     Active Substance: CYTARABINE
     Dosage: 10 MG, EVERY 2 WEEKS (CYCLE 5, DAY 5)UNK
  4. PREDNISOLONE. [Suspect]
     Active Substance: PREDNISOLONE
     Indication: CENTRAL NERVOUS SYSTEM LYMPHOMA
     Dosage: 3 MG ICV, EVERY 2 WEEKS (CYCLE 5, DAY 2-4) + MTX
  5. PREDNISOLONE. [Suspect]
     Active Substance: PREDNISOLONE
     Dosage: 3 MG ICV, EVERY 3 WEEKS (CYCLE 4 AND 6, DAY 3-5) + MTX
  6. METHOTREXATE. [Suspect]
     Active Substance: METHOTREXATE
     Indication: PRODUCT USED FOR UNKNOWN INDICATION
     Dosage: 2.5 MG, EVERY 2 WEEKS (CYCLE 5, DAY 2-4) + PREDNISOLONE
  7. G-CSF [Suspect]
     Active Substance: GRANULOCYTE COLONY-STIMULATING FACTOR NOS
     Indication: PROPHYLAXIS
     Dosage: AT EACH CYCLE
  8. SULFAMETHOXAZOLE AND TRIMETHOPRIM [Suspect]
     Active Substance: SULFAMETHOXAZOLE\TRIMETHOPRIM
     Indication: PRODUCT USED FOR UNKNOWN INDICATION
     Dosage: UNK AT EACH CYCLE
  9. METHOTREXATE. [Suspect]
     Active Substance: METHOTREXATE
     Dosage: 4000 MG/M2, EVERY 2 WEEKS (CYCLE 1-3, DAY 1
     Route: 042
  10. ACICLOVIR [Suspect]
     Active Substance: ACYCLOVIR
     Indication: PRODUCT USED FOR UNKNOWN INDICATION
     Dosage: UNK UNK, CYCLE
  11. METHOTREXATE. [Suspect]
     Active Substance: METHOTREXATE
     Indication: CENTRAL NERVOUS SYSTEM LYMPHOMA
     Dosage: 4000 MG/M2, EVERY 2 WEEKS (CYCLE 5, DAY 1)UNK
     Route: 042
  12. ARA-C [Suspect]
     Active Substance: CYTARABINE
     Indication: CENTRAL NERVOUS SYSTEM LYMPHOMA
     Dosage: 3000 MG/M2, EVERY 3 WEEKS (CYCLE 4 AND 6, DAY 1-2)
     Route: 042
  13. RITUXIMAB. [Suspect]
     Active Substance: RITUXIMAB
     Indication: CENTRAL NERVOUS SYSTEM LYMPHOMA
     Dosage: 375 MG/M2, EVERY 2 WEEKS (CYCLE 1-3, DAY 0)
     Route: 042
  14. ARA-C [Suspect]
     Active Substance: CYTARABINE
     Indication: PRODUCT USED FOR UNKNOWN INDICATION
     Dosage: 10 MG, EVERY 3 WEEKS (CYCLE 4 AND 6, DAY 6)
  15. METHOTREXATE. [Suspect]
     Active Substance: METHOTREXATE
     Dosage: 2.5 MG, EVERY 3 WEEKS (CYCLE 4 AND 6, DAY 3-5) + PREDNISOLONE

REACTIONS (1)
  - Staphylococcal infection [Unknown]
